FAERS Safety Report 8935420 (Version 1)
Quarter: 2012Q4

REPORT INFORMATION
  Report Type: Spontaneous
  Country: US (occurrence: None)
  Receive Date: 20121128
  Receipt Date: 20121128
  Transmission Date: 20130627
  Serious: Yes (Hospitalization)
  Sender: FDA-Public Use
  Company Number: None

PATIENT
  Age: 36 Year
  Sex: Male
  Weight: 92.99 kg

DRUGS (1)
  1. NAFCILLIN [Suspect]
     Indication: WOUND
     Route: 042
     Dates: start: 20121029, end: 20121117

REACTIONS (4)
  - Rash [None]
  - Nausea [None]
  - Vomiting [None]
  - Pyrexia [None]
